FAERS Safety Report 7900079 (Version 6)
Quarter: 2012Q4

REPORT INFORMATION
  Report Type: 
  Country: DE (occurrence: DE)
  Receive Date: 20110415
  Receipt Date: 20120921
  Transmission Date: 20130627
  Serious: Yes (Hospitalization, Other)
  Sender: FDA-Public Use
  Company Number: DE-BIOGENIDEC-2011BI012526

PATIENT
  Age: 0 Day
  Sex: Female

DRUGS (5)
  1. TYSABRI [Suspect]
     Indication: MATERNAL EXPOSURE TIMING UNSPECIFIED
     Route: 064
     Dates: start: 200904, end: 20100418
  2. TYSABRI [Suspect]
     Indication: MATERNAL EXPOSURE TIMING UNSPECIFIED
     Route: 064
     Dates: start: 20100718, end: 20101018
  3. CORTICOSTEROIDS [Concomitant]
     Indication: MATERNAL EXPOSURE TIMING UNSPECIFIED
     Route: 064
     Dates: start: 201007, end: 201007
  4. CORTICOSTEROIDS [Concomitant]
     Indication: MATERNAL EXPOSURE TIMING UNSPECIFIED
     Route: 064
     Dates: start: 201007, end: 201007
  5. IVIG [Concomitant]
     Indication: MATERNAL EXPOSURE TIMING UNSPECIFIED
     Route: 042
     Dates: start: 201007, end: 201007

REACTIONS (7)
  - Hypoglycaemia neonatal [Recovered/Resolved]
  - Cerebral haemorrhage foetal [Recovered/Resolved]
  - Low birth weight baby [Recovered/Resolved]
  - Respiratory syncytial virus bronchiolitis [Recovered/Resolved]
  - Anaemia neonatal [Recovered/Resolved]
  - Thrombocytopenia neonatal [Recovered/Resolved]
  - T-lymphocyte count decreased [Recovered/Resolved]
